FAERS Safety Report 6384702-6 (Version None)
Quarter: 2009Q4

REPORT INFORMATION
  Report Type: 
  Country: None (occurrence: None)
  Receive Date: 20091001
  Receipt Date: 20090917
  Transmission Date: 20100525
  Serious: Yes (Other)
  Sender: FDA-Public Use
  Company Number: JP-PFIZER INC-2009276918

PATIENT

DRUGS (1)
  1. ZOLOFT [Suspect]
     Route: 048

REACTIONS (2)
  - PORIOMANIA [None]
  - RESTLESSNESS [None]
